FAERS Safety Report 8039554-5 (Version None)
Quarter: 2012Q1

REPORT INFORMATION
  Report Type: 
  Country: None (occurrence: None)
  Receive Date: 20120111
  Receipt Date: 20111216
  Transmission Date: 20120608
  Serious: No
  Sender: FDA-Public Use
  Company Number: US-AMGEN-USASP2011067339

PATIENT
  Age: 46 Year
  Sex: Male

DRUGS (2)
  1. ENBREL [Suspect]
     Indication: PSORIATIC ARTHROPATHY
     Dosage: 50 MG, ONCE IN FOUR DAYS
     Dates: start: 20110809, end: 20111123
  2. ENBREL [Suspect]
     Indication: PSORIASIS

REACTIONS (2)
  - PNEUMONIA [None]
  - SINUSITIS [None]
